FAERS Safety Report 5305289-2 (Version None)
Quarter: 2007Q2

REPORT INFORMATION
  Report Type: 
  Country: None (occurrence: None)
  Receive Date: 20070424
  Receipt Date: 20070413
  Transmission Date: 20071010
  Serious: Yes (Death, Hospitalization)
  Sender: FDA-Public Use
  Company Number: BE-BAXTER-2007BH000215

PATIENT
  Age: 71 Year
  Sex: Female
  Weight: 77 kg

DRUGS (22)
  1. EXTRANEAL [Suspect]
     Indication: PERITONEAL DIALYSIS
     Route: 033
     Dates: start: 20060912, end: 20070104
  2. EXTRANEAL [Suspect]
     Indication: DIABETIC END STAGE RENAL DISEASE
     Route: 033
     Dates: start: 20060912, end: 20070104
  3. EXTRANEAL [Suspect]
     Route: 033
     Dates: start: 20060912, end: 20070104
  4. EXTRANEAL [Suspect]
     Route: 033
     Dates: start: 20060912, end: 20070104
  5. EXTRANEAL [Suspect]
     Route: 033
     Dates: start: 20060912, end: 20070104
  6. EXTRANEAL [Suspect]
     Route: 033
     Dates: start: 20060912, end: 20070104
  7. EXTRANEAL [Suspect]
     Route: 033
     Dates: start: 20070101, end: 20070101
  8. EXTRANEAL [Suspect]
     Route: 033
     Dates: start: 20070101, end: 20070101
  9. MEDROL [Concomitant]
     Dates: start: 20060227
  10. BEFACT FORTE [Concomitant]
     Dates: start: 20060307
  11. OMEPRAZOLE [Concomitant]
     Dates: start: 20060307
  12. CORUNO [Concomitant]
     Dates: start: 20060307
  13. MARCUMAR [Concomitant]
     Dosage: DOSE UNIT:UNKNOWN
     Dates: start: 20060309
  14. ARANESP [Concomitant]
     Dosage: DOSE UNIT:UNKNOWN
     Dates: start: 20060309
  15. ALPHA ^LEO^ [Concomitant]
     Dates: start: 20030331
  16. LORMETAZEPAM [Concomitant]
     Dates: start: 20060806
  17. LASIX [Concomitant]
     Dates: start: 20060928
  18. DUOVENT [Concomitant]
     Dosage: DOSE UNIT:UNKNOWN
  19. FRAXIPARIN [Concomitant]
     Dates: start: 20061002
  20. FORTIMEL [Concomitant]
     Dates: start: 20061016
  21. CHLOROPOTASSURIL [Concomitant]
     Dates: start: 20061101
  22. DIANEAL PD-1 [Concomitant]

REACTIONS (3)
  - CARDIAC FAILURE [None]
  - CATHETER SITE ERYTHEMA [None]
  - PERITONITIS [None]
